FAERS Safety Report 17797713 (Version 1)
Quarter: 2020Q2

REPORT INFORMATION
  Report Type: Spontaneous
  Country: US (occurrence: US)
  Receive Date: 20200515
  Receipt Date: 20200515
  Transmission Date: 20200714
  Serious: Yes (Other)
  Sender: FDA-Public Use
  Company Number: None

PATIENT
  Sex: Female
  Weight: 79.38 kg

DRUGS (15)
  1. CLARITIN [Concomitant]
     Active Substance: LORATADINE
  2. NOVORAPID [Concomitant]
     Active Substance: INSULIN ASPART
  3. ASPIRIN. [Concomitant]
     Active Substance: ASPIRIN
  4. CANDESPARTEN [Concomitant]
  5. GABAPENTIN. [Concomitant]
     Active Substance: GABAPENTIN
  6. LANSOPRAZOLE. [Concomitant]
     Active Substance: LANSOPRAZOLE
  7. MORPHINE [Concomitant]
     Active Substance: MORPHINE
  8. METINIA [Concomitant]
  9. PEG [Concomitant]
     Active Substance: POLYETHYLENE GLYCOLS
  10. DENOSUMAB INJECTION [Concomitant]
  11. ISOVUE [Suspect]
     Active Substance: IOPAMIDOL
  12. AMLODIPINE [Concomitant]
     Active Substance: AMLODIPINE BESYLATE
  13. TRESIBA [Concomitant]
     Active Substance: INSULIN DEGLUDEC
  14. LEVO-THYROXIN [Concomitant]
  15. FREESTYLE LIBRE [Concomitant]

REACTIONS (3)
  - Pain [None]
  - Contrast media reaction [None]
  - Infusion related reaction [None]
